FAERS Safety Report 18750073 (Version 1)
Quarter: 2021Q1

REPORT INFORMATION
  Report Type: Other
  Country: IN (occurrence: IN)
  Receive Date: 20210118
  Receipt Date: 20210118
  Transmission Date: 20210419
  Serious: Yes (Other)
  Sender: FDA-Public Use
  Company Number: IN-ROCHE-2747745

PATIENT

DRUGS (4)
  1. RITUXIMAB. [Suspect]
     Active Substance: RITUXIMAB
     Indication: IMMUNE THROMBOCYTOPENIA
     Route: 065
  2. CHLORPHENIRAMINE. [Concomitant]
     Active Substance: CHLORPHENIRAMINE
  3. PARACETAMOL [Concomitant]
     Active Substance: ACETAMINOPHEN
  4. RANITIDINE. [Concomitant]
     Active Substance: RANITIDINE

REACTIONS (8)
  - Hypotension [Unknown]
  - Respiratory distress [Unknown]
  - Infection [Unknown]
  - Tuberculosis [Unknown]
  - Chills [Unknown]
  - Dyspnoea [Unknown]
  - Cytopenia [Unknown]
  - Hypoxia [Unknown]
